FAERS Safety Report 16329593 (Version 1)
Quarter: 2019Q2

REPORT INFORMATION
  Report Type: Spontaneous
  Country: CN (occurrence: CN)
  Receive Date: 20190520
  Receipt Date: 20190520
  Transmission Date: 20190711
  Serious: Yes (Life-Threatening)
  Sender: FDA-Public Use
  Company Number: CN-JIANGSU HENGRUI MEDICINE CO., LTD.-2067158

PATIENT
  Age: 53 Year
  Sex: Male
  Weight: 59 kg

DRUGS (1)
  1. OXALIPLATIN INJECTION USP, 5 MG/ML, PACKAGED IN 50 MG/10 ML AND 100 MG [Suspect]
     Active Substance: OXALIPLATIN
     Indication: GASTRIC CANCER
     Dates: start: 20190323, end: 20190323

REACTIONS (1)
  - Total bile acids increased [Recovering/Resolving]

NARRATIVE: CASE EVENT DATE: 20190328
